FAERS Safety Report 5248078-X (Version None)
Quarter: 2007Q1

REPORT INFORMATION
  Report Type: 
  Country: None (occurrence: None)
  Receive Date: 20070227
  Receipt Date: 20070216
  Transmission Date: 20070707
  Serious: Yes (Hospitalization)
  Sender: FDA-Public Use
  Company Number: US-GLAXOSMITHKLINE-A0569737A

PATIENT
  Age: 66 Year
  Sex: Male

DRUGS (9)
  1. BLINDED TRIAL MEDICATION [Suspect]
     Indication: PROSTATE CANCER
     Route: 048
     Dates: start: 20041110, end: 20051201
  2. COREG [Suspect]
     Indication: HYPERTENSION
     Dosage: 12.5MG TWICE PER DAY
     Route: 048
     Dates: start: 19960101
  3. VASOTEC [Suspect]
     Indication: HYPERTENSION
     Dosage: 10MG TWICE PER DAY
     Route: 048
     Dates: start: 19960101
  4. LASIX [Suspect]
     Indication: HYPERTENSION
     Dosage: 40MG PER DAY
     Route: 048
     Dates: start: 19920101
  5. INSULIN [Suspect]
     Route: 058
  6. PLAVIX [Concomitant]
     Dosage: 75MG PER DAY
     Route: 048
     Dates: start: 19920101
  7. ASPIRIN [Concomitant]
     Dosage: 81MG PER DAY
     Route: 048
     Dates: start: 19920101
  8. POTASSIUM CHLORIDE [Concomitant]
     Indication: SUPPLEMENTATION THERAPY
     Dosage: 10MEQ PER DAY
     Route: 048
     Dates: start: 19920101
  9. VYTORIN [Concomitant]
     Route: 048

REACTIONS (6)
  - ATRIAL FIBRILLATION [None]
  - CARDIAC ENZYMES INCREASED [None]
  - DIABETIC COMPLICATION [None]
  - DIZZINESS [None]
  - SKIN ULCER [None]
  - URINARY TRACT INFECTION [None]
